FAERS Safety Report 6773906-6 (Version None)
Quarter: 2010Q2

REPORT INFORMATION
  Report Type: 
  Country: None (occurrence: None)
  Receive Date: 20100617
  Receipt Date: 20100608
  Transmission Date: 20101027
  Serious: No
  Sender: FDA-Public Use
  Company Number: 2010BI005349

PATIENT
  Sex: Female

DRUGS (1)
  1. TYSABRI [Suspect]
     Indication: MULTIPLE SCLEROSIS
     Route: 042
     Dates: start: 20091109

REACTIONS (6)
  - BALANCE DISORDER [None]
  - DEPRESSION [None]
  - FALL [None]
  - HEADACHE [None]
  - NEURALGIA [None]
  - SKIN BURNING SENSATION [None]
